FAERS Safety Report 23366990 (Version 1)
Quarter: 2024Q1

REPORT INFORMATION
  Report Type: Report from Study
  Country: IT (occurrence: IT)
  Receive Date: 20240104
  Receipt Date: 20240104
  Transmission Date: 20240410
  Serious: Yes (Other)
  Sender: FDA-Public Use
  Company Number: None

PATIENT
  Age: 69 Year

DRUGS (1)
  1. GEMCITABINE [Suspect]
     Active Substance: GEMCITABINE
     Indication: Nasal sinus cancer
     Dosage: GEMCITABINA?ISTART OF THERAPY 02/01/2023 - 1ST CYCLE - G1 AND G8 THERAPY EVERY 21 DAYS - 2ND CYCL...
     Route: 042
     Dates: start: 20230201, end: 20230228

REACTIONS (5)
  - Leukopenia [Recovering/Resolving]
  - Haemoglobin decreased [Recovering/Resolving]
  - Neutropenia [Recovering/Resolving]
  - Off label use [Recovering/Resolving]
  - Thrombocytopenia [Recovered/Resolved]

NARRATIVE: CASE EVENT DATE: 20230201
